FAERS Safety Report 8313425-9 (Version None)
Quarter: 2012Q2

REPORT INFORMATION
  Report Type: 
  Country: None (occurrence: None)
  Receive Date: 20120426
  Receipt Date: 20120423
  Transmission Date: 20120825
  Serious: Yes (Other)
  Sender: FDA-Public Use
  Company Number: PHEH2012US008659

PATIENT
  Sex: Female

DRUGS (5)
  1. ENABLEX [Concomitant]
  2. SYNTHROID [Concomitant]
  3. SIMVASTATIN [Concomitant]
  4. GILENYA [Suspect]
     Dosage: 0.5 MG,
     Route: 048
     Dates: start: 20120130
  5. PRAMIPEXOLE DIHYDROCHLORIDE [Concomitant]

REACTIONS (2)
  - VITREOUS FLOATERS [None]
  - VITREOUS DISORDER [None]
